FAERS Safety Report 9460003 (Version 1)
Quarter: 2013Q3

REPORT INFORMATION
  Report Type: Spontaneous
  Country: US (occurrence: None)
  Receive Date: 20130813
  Receipt Date: 20130813
  Transmission Date: 20140515
  Serious: Yes (Life-Threatening, Hospitalization, Disabling, Other)
  Sender: FDA-Public Use
  Company Number: None

PATIENT
  Age: 54 Year
  Sex: Female

DRUGS (13)
  1. IPRATROPIUM BROMIDE WITH ALBUTEROL SULFATE [Suspect]
     Indication: ASTHMA
     Dosage: IPRATROPIUM 0.5MG/ALBUTEROL 3.0 MG?(1 VIAL EACH TIME?EVERY 3 TO 4 HOURS ?BREATHING MACHINE BY MOUTH
  2. ALBUTEROL [Concomitant]
  3. DUO-A-NEB [Concomitant]
  4. FLOVENT [Concomitant]
  5. SPIRVIA [Concomitant]
  6. SINGULAR [Concomitant]
  7. MULTIVITAMINS [Concomitant]
  8. QVAR [Concomitant]
  9. ADVAIR [Concomitant]
  10. PROAIR [Concomitant]
  11. RANITIDINE [Concomitant]
  12. PREDNISONE [Concomitant]
  13. XOLAIR OMALIZUMAB [Concomitant]

REACTIONS (5)
  - Asthma [None]
  - Chronic obstructive pulmonary disease [None]
  - Emphysema [None]
  - Mycobacterial infection [None]
  - Lung infection [None]
